FAERS Safety Report 5923168-4 (Version None)
Quarter: 2008Q4

REPORT INFORMATION
  Report Type: 
  Country: None (occurrence: None)
  Receive Date: 20081020
  Receipt Date: 20080922
  Transmission Date: 20090506
  Serious: No
  Sender: FDA-Public Use
  Company Number: US-BAYER-200829706NA

PATIENT
  Age: 76 Year
  Sex: Male

DRUGS (1)
  1. LEVITRA [Suspect]
     Indication: ADVERSE EVENT
     Dosage: UNIT DOSE: 20 MG
     Dates: start: 20080401

REACTIONS (1)
  - SEXUAL DYSFUNCTION [None]
